FAERS Safety Report 7329136-2 (Version None)
Quarter: 2011Q1

REPORT INFORMATION
  Report Type: 
  Country: None (occurrence: None)
  Receive Date: 20110303
  Receipt Date: 20110301
  Transmission Date: 20110831
  Serious: Yes (Death)
  Sender: FDA-Public Use
  Company Number: ES-ABBOTT-11P-144-0708349-00

PATIENT
  Age: 69 Year
  Sex: Female
  Weight: 62 kg

DRUGS (4)
  1. HUMIRA [Suspect]
     Indication: RHEUMATOID ARTHRITIS
     Route: 058
     Dates: start: 20090624
  2. DACORTIN [Suspect]
     Indication: RHEUMATOID ARTHRITIS
     Route: 048
     Dates: start: 20090624
  3. FOSAMAX [Concomitant]
     Indication: OSTEOPOROSIS PROPHYLAXIS
     Route: 048
  4. CALCIUM SANDOZ FORTE D [Concomitant]
     Indication: OSTEOPOROSIS PROPHYLAXIS
     Dosage: 500MG CALCIUM 400IU VITAMINE D-DAILY
     Route: 048

REACTIONS (7)
  - HYDROCEPHALUS [None]
  - EAR INFECTION [None]
  - MASTOIDITIS [None]
  - MENINGITIS PNEUMOCOCCAL [None]
  - ENCEPHALITIS [None]
  - CNS VENTRICULITIS [None]
  - PLEURAL EFFUSION [None]
